FAERS Safety Report 15820309 (Version 1)
Quarter: 2019Q1

REPORT INFORMATION
  Report Type: Spontaneous
  Country: US (occurrence: US)
  Receive Date: 20190114
  Receipt Date: 20190114
  Transmission Date: 20190417
  Serious: Yes (Death)
  Sender: FDA-Public Use
  Company Number: US-MICRO LABS LIMITED-ML2019-00031

PATIENT
  Age: 19 Year
  Sex: Male

DRUGS (13)
  1. CYCLOPROPYLFENTANYL [Suspect]
     Active Substance: CYCLOPROPYLFENTANYL
  2. ALPRAZOLAM. [Suspect]
     Active Substance: ALPRAZOLAM
  3. ALCOHOL. [Suspect]
     Active Substance: ALCOHOL
     Route: 048
  4. DIAZEPAM. [Suspect]
     Active Substance: DIAZEPAM
  5. DELTA-9 TETRAHYDROCANNABINOL [Suspect]
     Active Substance: DRONABINOL
  6. PARAPHERNALIA (DEVICE) [Suspect]
     Active Substance: DEVICE
  7. DIPHENHYDRAMINE HYDROCHLORIDE. [Suspect]
     Active Substance: DIPHENHYDRAMINE HYDROCHLORIDE
  8. HEROIN [Suspect]
     Active Substance: DIAMORPHINE
  9. NORDIAZEPAM [Suspect]
     Active Substance: NORDAZEPAM
  10. DELTA-9 CARBOXY TETRAHYDROCANNABINOL [Suspect]
     Active Substance: DELTA(9)-TETRAHYDROCANNABINOLIC ACID
  11. 11-HYDROXY DELTA-9 TETRAHYDROCANNABINOL [Suspect]
     Active Substance: 11-HYDROXY-.DELTA.9-TETRAHYDROCANNABINOL
  12. MORPHINE [Suspect]
     Active Substance: MORPHINE
  13. MARIJUANA [Suspect]
     Active Substance: CANNABIS SATIVA SUBSP. INDICA TOP

REACTIONS (1)
  - Toxicity to various agents [Fatal]
